FAERS Safety Report 9332401 (Version 1)
Quarter: 2013Q2

REPORT INFORMATION
  Report Type: Spontaneous
  Country: FR (occurrence: FR)
  Receive Date: 20130606
  Receipt Date: 20130606
  Transmission Date: 20140414
  Serious: Yes (Death)
  Sender: FDA-Public Use
  Company Number: FR-AMGEN-FRASP2013039543

PATIENT
  Age: 67 Year
  Sex: Female

DRUGS (2)
  1. VECTIBIX [Suspect]
     Indication: COLORECTAL CANCER METASTATIC
     Dosage: 6 MG/KG, 2 WEEKS
     Route: 042
     Dates: start: 20120130, end: 20120214
  2. VECTIBIX [Suspect]
     Dosage: 6 MG/KG, 2 WEEKS
     Route: 042
     Dates: start: 20120130, end: 20120214

REACTIONS (1)
  - Interstitial lung disease [Fatal]
